FAERS Safety Report 25532486 (Version 1)
Quarter: 2025Q3

REPORT INFORMATION
  Report Type: Report from Study
  Country: US (occurrence: US)
  Receive Date: 20250709
  Receipt Date: 20250709
  Transmission Date: 20251021
  Serious: Yes (Hospitalization)
  Sender: ROCHE
  Company Number: US-ROCHE-10000326900

PATIENT
  Age: 77 Year
  Sex: Female

DRUGS (24)
  1. CELLCEPT [Suspect]
     Active Substance: MYCOPHENOLATE MOFETIL
     Indication: Dermatomyositis
     Dosage: 1 TAB IN THE AM, 2 TABS IN THE PM=1500MG/D
     Route: 048
     Dates: start: 20221107
  2. CELLCEPT [Suspect]
     Active Substance: MYCOPHENOLATE MOFETIL
     Indication: Myopathy
  3. clobetasol 0.05% Topical foam [Concomitant]
     Route: 061
  4. tacrolimus 0.1% Topical-antment [Concomitant]
     Route: 061
  5. cephalexin 500 mg Oral-capsule [Concomitant]
     Route: 048
  6. ciprofloxacin HCI 500 mg Oral tablet [Concomitant]
     Route: 048
  7. Valtrex 1 gram Oral-tablet [Concomitant]
     Route: 048
  8. CALCIUM [Concomitant]
     Active Substance: CALCIUM
  9. BIOTIN [Concomitant]
     Active Substance: BIOTIN
  10. VITAMIN D3 [Concomitant]
     Active Substance: CHOLECALCIFEROL
  11. Bitamin B complex [Concomitant]
  12. Prednisone 4-50 mg/d, currently 4 mg/d-ongoing [Concomitant]
     Dosage: 4-50 MG/D
     Route: 048
     Dates: start: 2003
  13. Prednisone 4-50 mg/d, currently 4 mg/d-ongoing [Concomitant]
     Route: 048
  14. Methotrexate 10-25 mg/ week [Concomitant]
     Dates: start: 2003, end: 2022
  15. AZATHIOPRINE [Concomitant]
     Active Substance: AZATHIOPRINE
     Dates: start: 2009
  16. Plaquenil 200 mg BID [Concomitant]
     Dates: start: 201404, end: 202004
  17. atorvastatin-statin [Concomitant]
  18. Dapsone 25-100 mg/d [Concomitant]
     Dates: start: 202105, end: 202110
  19. KLISYRI [Concomitant]
     Active Substance: TIRBANIBULIN
     Dates: start: 202405
  20. Valtrex PRN [Concomitant]
  21. TRIAMCINOLONE [Concomitant]
     Active Substance: TRIAMCINOLONE
  22. Momentasone ointment [Concomitant]
  23. clobetasole spray [Concomitant]
  24. DHS ZINC [Concomitant]
     Active Substance: PYRITHIONE ZINC

REACTIONS (13)
  - Neoplasm [Unknown]
  - Hyperlipidaemia [Unknown]
  - Osteopenia [Unknown]
  - Diverticulum intestinal [Unknown]
  - Pancreatic cyst [Unknown]
  - Herpes simplex [Recovering/Resolving]
  - Actinic keratosis [Unknown]
  - Dermal cyst [Unknown]
  - Off label use [Unknown]
  - Pruritus [Unknown]
  - Pain [Unknown]
  - Fatigue [Unknown]
  - Poikiloderma [Unknown]
